FAERS Safety Report 9645773 (Version 1)
Quarter: 2013Q4

REPORT INFORMATION
  Report Type: Spontaneous
  Country: US (occurrence: None)
  Receive Date: 20131024
  Receipt Date: 20131024
  Transmission Date: 20140711
  Serious: Yes (Life-Threatening)
  Sender: FDA-Public Use
  Company Number: None

PATIENT
  Age: 67 Year
  Sex: Female
  Weight: 88.8 kg

DRUGS (2)
  1. METHYLPREDNISOLONE [Suspect]
     Dosage: 1 INJECTION
     Route: 042
  2. IPRATROPIUM-ALBUTEROL (DUO-NEB) 3ML [Concomitant]

REACTIONS (2)
  - Dyspnoea [None]
  - Throat tightness [None]
